FAERS Safety Report 18911196 (Version 5)
Quarter: 2021Q3

REPORT INFORMATION
  Report Type: Report from Study
  Country: US (occurrence: US)
  Receive Date: 20210218
  Receipt Date: 20210910
  Transmission Date: 20211014
  Serious: No
  Sender: FDA-Public Use
  Company Number: NVSC2021US030089

PATIENT
  Age: 31 Year
  Sex: Male

DRUGS (1)
  1. KESIMPTA [Suspect]
     Active Substance: OFATUMUMAB
     Indication: MULTIPLE SCLEROSIS
     Dosage: 20 MG, QW
     Route: 058
     Dates: start: 20210130

REACTIONS (5)
  - Muscle spasms [Recovering/Resolving]
  - Chills [Recovered/Resolved]
  - Inappropriate schedule of product administration [Recovered/Resolved]
  - Sciatica [Recovering/Resolving]
  - Pyrexia [Recovered/Resolved]

NARRATIVE: CASE EVENT DATE: 20210130
